FAERS Safety Report 7693724-4 (Version None)
Quarter: 2011Q3

REPORT INFORMATION
  Report Type: 
  Country: None (occurrence: None)
  Receive Date: 20110819
  Receipt Date: 20110812
  Transmission Date: 20111222
  Serious: Yes (Other)
  Sender: FDA-Public Use
  Company Number: JP-ROCHE-796933

PATIENT
  Sex: Female

DRUGS (2)
  1. XELODA [Suspect]
     Indication: BREAST CANCER METASTATIC
     Dosage: NOTE: DOSAGE IS UNCERTAIN. DRUG: XELODA 300(CAPECITABINE)
     Route: 048
  2. TYKERB [Concomitant]
     Dosage: NOTE: DOSAGE IS UNCERTAIN. DRUG: TYKERB(LAPATINIB TOSILATE HYDRATE)
     Route: 048

REACTIONS (1)
  - PERINEAL ULCERATION [None]
